FAERS Safety Report 21380275 (Version 1)
Quarter: 2022Q3

REPORT INFORMATION
  Report Type: Spontaneous
  Country: FR (occurrence: FR)
  Receive Date: 20220927
  Receipt Date: 20220927
  Transmission Date: 20221027
  Serious: Yes (Other)
  Sender: FDA-Public Use
  Company Number: None

PATIENT
  Age: 68 Year
  Sex: Male

DRUGS (2)
  1. OXALIPLATIN [Suspect]
     Active Substance: OXALIPLATIN
     Indication: Gastric cancer
     Dosage: 130MG/M? OR 250MG
     Route: 042
     Dates: start: 20220725
  2. FLUOROURACIL [Suspect]
     Active Substance: FLUOROURACIL
     Indication: Dihydropyrimidine dehydrogenase deficiency
     Dosage: BOLUS 400MG THEN 1200MG
     Route: 042
     Dates: start: 20220616, end: 20220629

REACTIONS (4)
  - Tachycardia [Not Recovered/Not Resolved]
  - Oxygen saturation decreased [Not Recovered/Not Resolved]
  - Hyperthermia [Not Recovered/Not Resolved]
  - Vomiting [Not Recovered/Not Resolved]

NARRATIVE: CASE EVENT DATE: 20220616
